FAERS Safety Report 11231500 (Version 2)
Quarter: 2015Q3

REPORT INFORMATION
  Report Type: Spontaneous
  Country: JP (occurrence: JP)
  Receive Date: 20150701
  Receipt Date: 20150723
  Transmission Date: 20151125
  Serious: Yes (Death, Hospitalization)
  Sender: FDA-Public Use
  Company Number: JP-SA-2015SA092005

PATIENT
  Age: 90 Year
  Sex: Female

DRUGS (1)
  1. LASIX [Suspect]
     Active Substance: FUROSEMIDE
     Indication: OEDEMA PERIPHERAL
     Route: 048

REACTIONS (10)
  - Toxic epidermal necrolysis [Fatal]
  - Stevens-Johnson syndrome [Fatal]
  - Skin exfoliation [Fatal]
  - Skin erosion [Fatal]
  - Skin lesion [Fatal]
  - Erythema [Fatal]
  - Renal impairment [Unknown]
  - Pyrexia [Fatal]
  - Rash [Fatal]
  - Infection [Fatal]
